FAERS Safety Report 12888193 (Version 1)
Quarter: 2016Q4

REPORT INFORMATION
  Report Type: Report from Study
  Country: None (occurrence: US)
  Receive Date: 20161027
  Receipt Date: 20161027
  Transmission Date: 20170207
  Serious: Yes (Other)
  Sender: FDA-Public Use
  Company Number: US-ABBVIE-16K-163-1761659-00

PATIENT
  Age: 58 Year
  Sex: Male

DRUGS (1)
  1. HUMIRA [Suspect]
     Active Substance: ADALIMUMAB
     Indication: PSORIASIS
     Route: 058
     Dates: start: 201410, end: 201606

REACTIONS (7)
  - Incision site pain [Recovering/Resolving]
  - Rotator cuff syndrome [Recovered/Resolved]
  - Tendon rupture [Recovered/Resolved]
  - Fall [Recovered/Resolved]
  - Purulence [Recovered/Resolved]
  - Post-traumatic pain [Unknown]
  - Incision site infection [Recovered/Resolved]

NARRATIVE: CASE EVENT DATE: 201601
